FAERS Safety Report 22105619 (Version 2)
Quarter: 2023Q1

REPORT INFORMATION
  Report Type: Report from Study
  Country: US (occurrence: None)
  Receive Date: 20230317
  Receipt Date: 20230322
  Transmission Date: 20230417
  Serious: Yes (Other)
  Sender: FDA-Public Use
  Company Number: US-Merck Healthcare KGaA-9388968

PATIENT
  Age: 47 Year
  Sex: Female

DRUGS (5)
  1. MAVENCLAD [Suspect]
     Active Substance: CLADRIBINE
     Indication: Multiple sclerosis
     Dosage: YEAR ONE MONTH ONE THERAPY: TOOK 3 DAYS DOSES
     Route: 048
     Dates: start: 20230306
  2. DILTIAZEM [Suspect]
     Active Substance: DILTIAZEM
     Indication: Hypertension
  3. LISINOPRIL [Suspect]
     Active Substance: LISINOPRIL
     Indication: Hypertension
  4. CLONIDINE [Suspect]
     Active Substance: CLONIDINE
     Indication: Hypertension
  5. CLONIDINE [Suspect]
     Active Substance: CLONIDINE
     Dosage: INCREASED DOSE IN JAN (YEAR NOT REPORTED)

REACTIONS (2)
  - Syncope [Recovered/Resolved]
  - Fall [Unknown]

NARRATIVE: CASE EVENT DATE: 20230308
